FAERS Safety Report 14110750 (Version 1)
Quarter: 2017Q4

REPORT INFORMATION
  Report Type: Spontaneous
  Country: IT (occurrence: IT)
  Receive Date: 20171020
  Receipt Date: 20171020
  Transmission Date: 20180321
  Serious: Yes (Other)
  Sender: FDA-Public Use
  Company Number: IT-MERCK KGAA-2030870

PATIENT
  Age: 37 Year
  Sex: Female

DRUGS (8)
  1. NOVOTHYROX [Suspect]
     Active Substance: LEVOTHYROXINE SODIUM
     Indication: PRODUCT USED FOR UNKNOWN INDICATION
     Route: 048
  2. SURSUM (TOCOPHEROL) [Suspect]
     Active Substance: TOCOPHEROL
     Route: 048
  3. DELTACORTENE [Suspect]
     Active Substance: PREDNISONE
     Dates: start: 20160611
  4. CLEXANE [Suspect]
     Active Substance: ENOXAPARIN SODIUM
     Route: 058
     Dates: start: 20160611
  5. FERTIFOL [Suspect]
     Active Substance: FOLIC ACID
     Route: 048
  6. PROGEFFIK [Suspect]
     Active Substance: PROGESTERONE
     Route: 048
     Dates: end: 20160611
  7. PRONTOGEST [Suspect]
     Active Substance: PROGESTERONE
     Route: 030
     Dates: start: 20160611
  8. PROGYNOVA [Suspect]
     Active Substance: ESTRADIOL VALERATE
     Route: 048
     Dates: start: 20160611

REACTIONS (2)
  - Urticaria [None]
  - Angioedema [None]

NARRATIVE: CASE EVENT DATE: 20160615
